FAERS Safety Report 4395604-9 (Version None)
Quarter: 2004Q3

REPORT INFORMATION
  Report Type: 
  Country: None (occurrence: None)
  Receive Date: 20040712
  Receipt Date: 20040712
  Transmission Date: 20050211
  Serious: Yes (Other)
  Sender: FDA-Public Use
  Company Number: None

PATIENT
  Age: 65 Year
  Sex: Male
  Weight: 64.9 kg

DRUGS (9)
  1. FLUNISOLIDE [Suspect]
  2. CROMOLYN NA [Concomitant]
  3. LORATADINE [Concomitant]
  4. MONTELUKAST NA [Concomitant]
  5. FLUTICAS 250/ SALMETEROL INHL [Concomitant]
  6. FLUOXETINE HCL [Concomitant]
  7. ALBUTEROL [Concomitant]
  8. CETIRIZINE HCL [Concomitant]
  9. FLUNISOLIDE 250 ,MCG/MENTHOL [Concomitant]

REACTIONS (2)
  - NASAL DISCOMFORT [None]
  - THROAT IRRITATION [None]
